FAERS Safety Report 4691402-7 (Version None)
Quarter: 2005Q2

REPORT INFORMATION
  Report Type: 
  Country: None (occurrence: None)
  Receive Date: 20050615
  Receipt Date: 20050601
  Transmission Date: 20051028
  Serious: Yes (Hospitalization)
  Sender: FDA-Public Use
  Company Number: 2005058425

PATIENT
  Age: 83 Year
  Sex: Male
  Weight: 74.8435 kg

DRUGS (8)
  1. BEXTRA [Suspect]
     Indication: RADIATION ASSOCIATED PAIN
     Dosage: 10 MG (10 MG, 1 IN 1 D)
     Dates: start: 20050119, end: 20050214
  2. HYDROCODONE BITARTRATE + ACETAMINOPHEN [Concomitant]
  3. BISOPROLOL FUMARATE/HYDROCHLOROTHIAZIDE (BISOPROLOL FUMARAE, HYDROCHLO [Concomitant]
  4. BENAZEPRIL HCL [Concomitant]
  5. TAMSULOSIN HCL [Concomitant]
  6. DEXAMETHASONE [Concomitant]
  7. PHENAZOPYRIDINE (PHENAZOPYRIDINE) [Concomitant]
  8. CHEMOTHERAPY NOS (CHEMOTHERAPY NOS) [Concomitant]

REACTIONS (8)
  - CANDIDIASIS [None]
  - DYSPHAGIA [None]
  - GASTRIC ULCER [None]
  - HERPES VIRUS INFECTION [None]
  - MUSCULOSKELETAL PAIN [None]
  - OESOPHAGEAL INFECTION [None]
  - ORAL MUCOSAL DISCOLOURATION [None]
  - WEIGHT DECREASED [None]
